FAERS Safety Report 10589008 (Version 1)
Quarter: 2014Q4

REPORT INFORMATION
  Report Type: Spontaneous
  Country: CA (occurrence: CA)
  Receive Date: 20141117
  Receipt Date: 20141117
  Transmission Date: 20150529
  Serious: Yes (Other)
  Sender: FDA-Public Use
  Company Number: PHHY2014CA147380

PATIENT
  Age: 45 Year
  Sex: Female

DRUGS (3)
  1. NITROFURANTOIN. [Suspect]
     Active Substance: NITROFURANTOIN
     Indication: URINARY TRACT INFECTION
     Route: 065
  2. ACETAMINOPHEN. [Concomitant]
     Active Substance: ACETAMINOPHEN
     Indication: ARTHRALGIA
     Route: 065
  3. CIPROFLOXACIN. [Suspect]
     Active Substance: CIPROFLOXACIN
     Indication: URINARY TRACT INFECTION
     Route: 065

REACTIONS (18)
  - Rash pustular [Recovering/Resolving]
  - Erythema [Recovering/Resolving]
  - C-reactive protein increased [Recovering/Resolving]
  - Skin oedema [Recovering/Resolving]
  - Episcleritis [Recovering/Resolving]
  - Neutrophilia [Recovering/Resolving]
  - Skin plaque [Recovering/Resolving]
  - Red blood cell sedimentation rate increased [Recovering/Resolving]
  - Arthralgia [Recovering/Resolving]
  - Skin mass [Recovering/Resolving]
  - Headache [Recovering/Resolving]
  - Dry eye [Recovering/Resolving]
  - Acute febrile neutrophilic dermatosis [Recovering/Resolving]
  - Pain of skin [Recovering/Resolving]
  - Lacrimation increased [Recovering/Resolving]
  - Neutrophilic dermatosis [Recovering/Resolving]
  - Leukocytosis [Recovering/Resolving]
  - Panniculitis [Recovering/Resolving]
